FAERS Safety Report 20328515 (Version 1)
Quarter: 2022Q1

REPORT INFORMATION
  Report Type: Spontaneous
  Country: US (occurrence: None)
  Receive Date: 20220112
  Receipt Date: 20220112
  Transmission Date: 20220423
  Serious: Yes (Other)
  Sender: FDA-Public Use
  Company Number: None

PATIENT
  Age: 29 Year
  Sex: Female
  Weight: 79 kg

DRUGS (5)
  1. REGEN-COV [Suspect]
     Active Substance: CASIRIVIMAB\IMDEVIMAB
     Indication: COVID-19
     Dosage: FREQUENCY : ONCE;?
     Route: 041
     Dates: start: 20211222, end: 20211222
  2. ACETAMINOPHEN [Concomitant]
     Active Substance: ACETAMINOPHEN
     Dates: start: 20211222
  3. phenol topical spray [Concomitant]
     Dates: start: 20211222
  4. lidocaine viscous 2 % [Concomitant]
     Dates: start: 20211222
  5. Aluminum/Mag Hydrox-Simethicone Susp [Concomitant]
     Dates: start: 20211222

REACTIONS (7)
  - Chest discomfort [None]
  - Throat tightness [None]
  - Dyspnoea [None]
  - Retching [None]
  - Heart rate increased [None]
  - Blood pressure decreased [None]
  - Infusion related reaction [None]

NARRATIVE: CASE EVENT DATE: 20211222
